FAERS Safety Report 7742869-9 (Version None)
Quarter: 2011Q3

REPORT INFORMATION
  Report Type: 
  Country: None (occurrence: None)
  Receive Date: 20110912
  Receipt Date: 20110829
  Transmission Date: 20111222
  Serious: Yes (Hospitalization)
  Sender: FDA-Public Use
  Company Number: DE-ELI_LILLY_AND_COMPANY-DE201108008313

PATIENT
  Age: 69 Year
  Sex: Male

DRUGS (4)
  1. VITAMIN D [Concomitant]
  2. OXYGEN [Concomitant]
  3. FORTEO [Suspect]
     Indication: OSTEOPOROSIS
     Dosage: UNK, QD
     Route: 058
     Dates: start: 20110401
  4. CORTISONE ACETATE [Concomitant]

REACTIONS (2)
  - LUNG INFECTION [None]
  - DYSPNOEA [None]
